FAERS Safety Report 9901683 (Version 1)
Quarter: 2014Q1

REPORT INFORMATION
  Report Type: Spontaneous
  Country: FR (occurrence: FR)
  Receive Date: 20140217
  Receipt Date: 20140217
  Transmission Date: 20141002
  Serious: Yes (Other)
  Sender: FDA-Public Use
  Company Number: PHHY2014FR016718

PATIENT
  Age: 55 Year
  Sex: Male

DRUGS (4)
  1. 5-FLUOROURACIL [Suspect]
     Indication: HEAD AND NECK CANCER
     Dosage: 750 MG/M2, (DAY 01-04)
  2. 5-FLUOROURACIL [Suspect]
     Dosage: 6150 MG, UNK
  3. DOCETAXEL [Concomitant]
     Indication: HEAD AND NECK CANCER
     Dosage: 75 MG/M2, DAY 01
  4. CISPLATIN [Concomitant]
     Indication: HEAD AND NECK CANCER
     Dosage: 75 MG/M2, DAY 01

REACTIONS (6)
  - Neurotoxicity [Recovered/Resolved]
  - Metabolic encephalopathy [Recovered/Resolved]
  - Convulsion [Recovered/Resolved]
  - Loss of consciousness [Recovered/Resolved]
  - Neutropenia [Recovered/Resolved]
  - Sepsis [Recovered/Resolved]
